FAERS Safety Report 11745143 (Version 3)
Quarter: 2016Q1

REPORT INFORMATION
  Report Type: Spontaneous
  Country: US (occurrence: US)
  Receive Date: 20151117
  Receipt Date: 20160111
  Transmission Date: 20160525
  Serious: Yes (Life-Threatening, Hospitalization, Other)
  Sender: FDA-Public Use
  Company Number: US-ALKEM-001325

PATIENT
  Age: 52 Year
  Sex: Female

DRUGS (1)
  1. METFORMIN [Suspect]
     Active Substance: METFORMIN HYDROCHLORIDE
     Indication: PRODUCT USED FOR UNKNOWN INDICATION

REACTIONS (8)
  - Cerebral disorder [Recovered/Resolved]
  - Hypoglycaemia [Recovered/Resolved]
  - Shock [Recovered/Resolved]
  - Blindness transient [Recovered/Resolved]
  - Lactic acidosis [Recovered/Resolved]
  - Acute kidney injury [Unknown]
  - Multiple organ dysfunction syndrome [Unknown]
  - Acute myocardial infarction [Recovered/Resolved]
